FAERS Safety Report 8331501 (Version 3)
Quarter: 2012Q4

REPORT INFORMATION
  Report Type: 
  Country: US (occurrence: US)
  Receive Date: 20120111
  Receipt Date: 20121224
  Transmission Date: 20130627
  Serious: Yes (Hospitalization, Other)
  Sender: FDA-Public Use
  Company Number: PHHY2011US19731

PATIENT
  Sex: Male
  Weight: 149 kg

DRUGS (12)
  1. GLEEVEC [Suspect]
     Indication: NEOPLASM MALIGNANT
     Dosage: 400 mg, daily
     Route: 048
     Dates: start: 20100916
  2. COMPAZINE [Concomitant]
  3. LACTULOSE [Concomitant]
  4. ZOLOFT [Concomitant]
  5. ALDACTONE [Concomitant]
  6. LASIX [Concomitant]
  7. MEGACE [Concomitant]
  8. LIPITOR [Concomitant]
  9. OMEPRAZOLE [Concomitant]
  10. FERATAB [Concomitant]
  11. MAG-OX [Concomitant]
  12. PRILOSEC [Concomitant]

REACTIONS (15)
  - Dehydration [Unknown]
  - Breath odour [Unknown]
  - Dental caries [Unknown]
  - Gingival disorder [Unknown]
  - Renal failure chronic [Unknown]
  - Impaired gastric emptying [Unknown]
  - Iron deficiency [Unknown]
  - Skin hypertrophy [Unknown]
  - Skin hyperpigmentation [Unknown]
  - Weight decreased [Unknown]
  - Anaemia [Unknown]
  - Constipation [Unknown]
  - Vomiting [Unknown]
  - Depression [Unknown]
  - Nausea [Unknown]
